FAERS Safety Report 16451737 (Version 3)
Quarter: 2021Q4

REPORT INFORMATION
  Report Type: Report from Study
  Country: JP (occurrence: JP)
  Receive Date: 20190619
  Receipt Date: 20211216
  Transmission Date: 20220303
  Serious: Yes (Death, Hospitalization)
  Sender: FDA-Public Use
  Company Number: JP-CELGENE-JPN-20190607060

PATIENT
  Age: 83 Year
  Sex: Female

DRUGS (20)
  1. REVLIMID [Suspect]
     Active Substance: LENALIDOMIDE
     Indication: Adult T-cell lymphoma/leukaemia
     Dosage: 5 MILLIGRAM
     Route: 048
     Dates: start: 20180822, end: 20180903
  2. REVLIMID [Suspect]
     Active Substance: LENALIDOMIDE
     Dosage: 5 MILLIGRAM
     Route: 048
     Dates: start: 20180925, end: 20181003
  3. REVLIMID [Suspect]
     Active Substance: LENALIDOMIDE
     Route: 048
     Dates: start: 20181018, end: 20181031
  4. ALLELOCK [Concomitant]
     Active Substance: OLOPATADINE HYDROCHLORIDE
     Indication: Adverse event
     Dosage: UNKNOWN
     Route: 048
  5. STIBRON [Concomitant]
     Indication: Adverse event
     Dosage: UNKNOWN
     Route: 061
  6. LOCOID [Concomitant]
     Active Substance: HYDROCORTISONE BUTYRATE
     Indication: Adverse event
     Dosage: UNKNOWN
     Route: 061
  7. EPINASTINE [Concomitant]
     Active Substance: EPINASTINE
     Indication: Adverse event
     Dosage: UNKNOWN
     Route: 048
  8. PREDONINE [Concomitant]
     Active Substance: PREDNISOLONE
     Indication: Adverse event
     Dosage: UNKNOWN
     Route: 048
  9. PREDONINE [Concomitant]
     Active Substance: PREDNISOLONE
     Indication: Erythema
  10. SOLVEGA [Concomitant]
     Indication: Adverse event
     Dosage: UNKNOWN
     Route: 061
  11. GLYCOSAMINOGLYCANS [Concomitant]
     Active Substance: GLYCOSAMINOGLYCANS
     Indication: Adverse event
     Dosage: UNKNOWN
     Route: 061
  12. Talion [Concomitant]
     Indication: Adverse event
     Dosage: UNKNOWN
     Route: 048
  13. Talion [Concomitant]
     Indication: Erythema
  14. SUPLATAST TOSILATE [Concomitant]
     Active Substance: SUPLATAST TOSILATE
     Indication: Adverse event
     Dosage: UNKNOWN
     Route: 048
  15. SUPLATAST TOSILATE [Concomitant]
     Active Substance: SUPLATAST TOSILATE
     Indication: Erythema
  16. DIPHENHYDRAMINE [Concomitant]
     Active Substance: DIPHENHYDRAMINE
     Indication: Adverse event
     Dosage: UNKNOWN
     Route: 061
  17. BETAMETHASONE BUTYRATE PROPIONATE [Concomitant]
     Active Substance: BETAMETHASONE BUTYRATE PROPIONATE
     Indication: Adverse event
     Dosage: UNKNOWN
     Route: 061
  18. BETAMETHASONE BUTYRATE PROPIONATE [Concomitant]
     Active Substance: BETAMETHASONE BUTYRATE PROPIONATE
     Indication: Erythema
  19. PETROLATUM [Concomitant]
     Active Substance: PETROLATUM
     Indication: Adverse event
     Dosage: UNKNOWN
     Route: 061
  20. PETROLATUM [Concomitant]
     Active Substance: PETROLATUM
     Indication: Erythema

REACTIONS (4)
  - Death [Fatal]
  - Erythema [Recovered/Resolved]
  - Purpura [Recovering/Resolving]
  - Erythema [Recovered/Resolved]

NARRATIVE: CASE EVENT DATE: 20180903
